FAERS Safety Report 7812299-X (Version None)
Quarter: 2011Q4

REPORT INFORMATION
  Report Type: 
  Country: None (occurrence: None)
  Receive Date: 20111013
  Receipt Date: 20111005
  Transmission Date: 20120403
  Serious: Yes (Hospitalization)
  Sender: FDA-Public Use
  Company Number: AU-JNJFOC-20111002141

PATIENT
  Sex: Female

DRUGS (2)
  1. STELARA [Suspect]
     Indication: PSORIASIS
     Route: 058
     Dates: start: 20110926
  2. STELARA [Suspect]
     Route: 058
     Dates: start: 20110804

REACTIONS (2)
  - DRUG DOSE OMISSION [None]
  - NEURALGIA [None]
